FAERS Safety Report 6555936-2 (Version None)
Quarter: 2010Q1

REPORT INFORMATION
  Report Type: 
  Country: None (occurrence: None)
  Receive Date: 20100128
  Receipt Date: 20100122
  Transmission Date: 20100710
  Serious: Yes (Other)
  Sender: FDA-Public Use
  Company Number: SG-PFIZER INC-2010009300

PATIENT
  Age: 32 Year
  Sex: Female

DRUGS (2)
  1. FLUCONAZOLE [Suspect]
     Dosage: UNK
     Route: 048
     Dates: start: 20090826
  2. LOMOTIL [Suspect]

REACTIONS (1)
  - STEVENS-JOHNSON SYNDROME [None]
